FAERS Safety Report 7683005-7 (Version None)
Quarter: 2011Q3

REPORT INFORMATION
  Report Type: 
  Country: None (occurrence: None)
  Receive Date: 20110812
  Receipt Date: 20110812
  Transmission Date: 20111222
  Serious: Yes (Life-Threatening)
  Sender: FDA-Public Use
  Company Number: None

PATIENT
  Sex: Female
  Weight: 84.369 kg

DRUGS (1)
  1. TOPIRAMATE [Suspect]
     Dosage: 10:00 AM 50 MG; 10:00 PM 50 MG

REACTIONS (2)
  - PRODUCT QUALITY ISSUE [None]
  - SUICIDAL IDEATION [None]
